FAERS Safety Report 5033257-7 (Version None)
Quarter: 2006Q2

REPORT INFORMATION
  Report Type: 
  Country: None (occurrence: None)
  Receive Date: 20060620
  Receipt Date: 20060606
  Transmission Date: 20061013
  Serious: Yes (Hospitalization, Disabling)
  Sender: FDA-Public Use
  Company Number: 414262

PATIENT
  Age: 17 Year
  Sex: Female
  Weight: 45.8 kg

DRUGS (3)
  1. ACCUTANE [Suspect]
     Indication: ACNE
     Dosage: 40 MG DAILY ORAL
     Route: 048
     Dates: start: 19980713
  2. BACTRIM DS [Concomitant]
  3. DRYSOL (ALUMINUM CHLORIDE) [Concomitant]

REACTIONS (82)
  - ADHESIOLYSIS [None]
  - ANAEMIA [None]
  - ANKYLOSING SPONDYLITIS [None]
  - ANOREXIA [None]
  - ANXIETY [None]
  - ARTHRALGIA [None]
  - BACK PAIN [None]
  - BLOOD CALCIUM DECREASED [None]
  - BLOOD GLUCOSE INCREASED [None]
  - BLOOD SODIUM DECREASED [None]
  - BLOOD UREA DECREASED [None]
  - BLOOD URIC ACID DECREASED [None]
  - BLOOD URINE PRESENT [None]
  - BRACHIAL PLEXOPATHY [None]
  - CERVICAL DYSPLASIA [None]
  - CERVICITIS [None]
  - CHEILITIS [None]
  - CHEST DISCOMFORT [None]
  - CHEST PAIN [None]
  - COLITIS [None]
  - COLITIS ULCERATIVE [None]
  - CROHN'S DISEASE [None]
  - DACRYOSTENOSIS ACQUIRED [None]
  - DEHYDRATION [None]
  - DEPRESSION [None]
  - DERMAL CYST [None]
  - DEVICE BREAKAGE [None]
  - DIARRHOEA [None]
  - DISCOMFORT [None]
  - DIZZINESS [None]
  - DRUG EFFECT DECREASED [None]
  - DRY SKIN [None]
  - DYSPHAGIA [None]
  - DYSPNOEA [None]
  - ERYTHEMA [None]
  - EYE IRRITATION [None]
  - FAMILY STRESS [None]
  - FATIGUE [None]
  - FUNGAL SKIN INFECTION [None]
  - GASTROINTESTINAL DISORDER [None]
  - GASTROOESOPHAGEAL REFLUX DISEASE [None]
  - HAEMOGLOBIN DECREASED [None]
  - HAEMORRHOIDAL HAEMORRHAGE [None]
  - HEADACHE [None]
  - HORDEOLUM [None]
  - ILEOSTOMY [None]
  - INJURY [None]
  - INSOMNIA [None]
  - INTESTINAL HAEMORRHAGE [None]
  - MULTI-ORGAN DISORDER [None]
  - MUSCLE SPASMS [None]
  - NAUSEA [None]
  - NEUTROPHIL COUNT INCREASED [None]
  - NEUTROPHIL PERCENTAGE INCREASED [None]
  - OSTEOARTHRITIS [None]
  - PAIN IN EXTREMITY [None]
  - PAPILLOMA VIRAL INFECTION [None]
  - PARAESTHESIA [None]
  - PCO2 DECREASED [None]
  - PLATELET COUNT INCREASED [None]
  - POST PROCEDURAL NAUSEA [None]
  - POSTURE ABNORMAL [None]
  - POUCHITIS [None]
  - PROCEDURAL COMPLICATION [None]
  - PROCEDURAL PAIN [None]
  - PROCTALGIA [None]
  - PROSTATECTOMY [None]
  - PROTEIN TOTAL DECREASED [None]
  - PYLORIC STENOSIS [None]
  - PYLOROSPASM [None]
  - RADICULOPATHY [None]
  - RECTAL HAEMORRHAGE [None]
  - RED BLOOD CELL SEDIMENTATION RATE INCREASED [None]
  - ROAD TRAFFIC ACCIDENT [None]
  - SHOULDER PAIN [None]
  - STRESS [None]
  - STRESS AT WORK [None]
  - TENDON RUPTURE [None]
  - URINE LEUKOCYTE ESTERASE POSITIVE [None]
  - VISUAL DISTURBANCE [None]
  - VOMITING [None]
  - WEIGHT DECREASED [None]
